FAERS Safety Report 7810260-2 (Version None)
Quarter: 2011Q4

REPORT INFORMATION
  Report Type: 
  Country: None (occurrence: None)
  Receive Date: 20111012
  Receipt Date: 20110928
  Transmission Date: 20120403
  Serious: Yes (Other)
  Sender: FDA-Public Use
  Company Number: FR-ROCHE-1000797

PATIENT
  Sex: Female

DRUGS (2)
  1. AVASTIN [Suspect]
     Indication: BREAST CANCER
     Route: 042
  2. PACLITAXEL [Concomitant]
     Route: 042
     Dates: end: 20100501

REACTIONS (2)
  - HYPERTENSION [None]
  - ARRHYTHMIA [None]
